FAERS Safety Report 7651031-X (Version None)
Quarter: 2011Q3

REPORT INFORMATION
  Report Type: 
  Country: None (occurrence: None)
  Receive Date: 20110727
  Receipt Date: 20110711
  Transmission Date: 20111222
  Serious: Yes (Hospitalization, Other)
  Sender: FDA-Public Use
  Company Number: 2011MA008582

PATIENT
  Age: 49 Year
  Sex: Female

DRUGS (5)
  1. PETHIDINE (PETHIDINE) [Suspect]
     Dosage: 300 MG
  2. NIZATIDINE [Suspect]
     Indication: OVERDOSE
     Dosage: 1200 MG
  3. DIAZEPAM [Suspect]
     Indication: OVERDOSE
     Dosage: 26 MG
  4. AMITRIPTYLINE HCL [Suspect]
     Indication: OVERDOSE
     Dosage: 420 MG
  5. IBUPROFEN [Suspect]
     Indication: OVERDOSE
     Dosage: 120 MG

REACTIONS (8)
  - BLOOD GLUCOSE INCREASED [None]
  - RESPIRATORY RATE DECREASED [None]
  - DEPRESSED LEVEL OF CONSCIOUSNESS [None]
  - SOMNOLENCE [None]
  - HYPOTENSION [None]
  - MULTIPLE DRUG OVERDOSE [None]
  - ACIDOSIS [None]
  - COMA SCALE ABNORMAL [None]
